FAERS Safety Report 4551155-X (Version None)
Quarter: 2005Q1

REPORT INFORMATION
  Report Type: 
  Country: None (occurrence: None)
  Receive Date: 20050111
  Receipt Date: 20050111
  Transmission Date: 20050727
  Serious: Yes (Other)
  Sender: FDA-Public Use
  Company Number: None

PATIENT
  Age: 24 Year
  Sex: Female
  Weight: 63.5 kg

DRUGS (1)
  1. LAMOTRIGINE [Suspect]
     Indication: MIGRAINE
     Dosage: 100MG,50MG BID, ORAL
     Route: 048
     Dates: start: 20041129, end: 20041217

REACTIONS (1)
  - RASH [None]
